FAERS Safety Report 10038186 (Version 1)
Quarter: 2014Q1

REPORT INFORMATION
  Report Type: Spontaneous
  Country: CN (occurrence: CN)
  Receive Date: 20140326
  Receipt Date: 20140326
  Transmission Date: 20141002
  Serious: Yes (Other)
  Sender: FDA-Public Use
  Company Number: CN-JNJFOC-20140308115

PATIENT
  Sex: 0

DRUGS (1)
  1. RISPERIDONE [Suspect]
     Indication: SCHIZOPHRENIA
     Route: 065

REACTIONS (3)
  - Blood triglycerides increased [Unknown]
  - Insulin resistance [Unknown]
  - Blood cholesterol increased [Unknown]
